FAERS Safety Report 9409574 (Version 1)
Quarter: 2013Q3

REPORT INFORMATION
  Report Type: Spontaneous
  Country: US (occurrence: None)
  Receive Date: 20130716
  Receipt Date: 20130716
  Transmission Date: 20140515
  Serious: Yes (Hospitalization)
  Sender: FDA-Public Use
  Company Number: 2013PL000103

PATIENT
  Age: 68 Year
  Sex: Female
  Weight: 93.9 kg

DRUGS (25)
  1. LOTRONEX [Suspect]
     Indication: DIARRHOEA
     Route: 048
     Dates: start: 20130517, end: 20130704
  2. NEURONTIN [Concomitant]
  3. NABUMETONE [Concomitant]
  4. METHOTREXATE [Concomitant]
  5. FOLIC ACID [Concomitant]
  6. FLUTICASONE PROPIONATE [Concomitant]
  7. CHLOR-TRIMETON [Concomitant]
  8. SINGULAIR [Concomitant]
  9. PROVENTIL [Concomitant]
  10. AMBIEN [Concomitant]
  11. AMITRIPTYLINE [Concomitant]
  12. REQUIP [Concomitant]
  13. HYDROCODONE W/ACETAMINOPHEN [Concomitant]
  14. SYNTHROID [Concomitant]
  15. VITAMIN D/00107901 [Concomitant]
  16. KLOR-CON [Concomitant]
  17. LASIX /0032601/ [Concomitant]
  18. ZARAOXLYN [Concomitant]
  19. TIZANIDINE [Concomitant]
  20. CALCIUM CITRATE [Concomitant]
  21. VITAMIN B [Concomitant]
  22. BIOTIN [Concomitant]
  23. IRON [Concomitant]
  24. VITAMIN A, D, AND E [Concomitant]
  25. TPN VIA. PICC LINE [Concomitant]

REACTIONS (11)
  - Fall [None]
  - Syncope [None]
  - Urinary tract infection [None]
  - Dizziness [None]
  - Migraine [None]
  - Hepatic cyst [None]
  - Renal cyst [None]
  - Biliary cyst [None]
  - Cholelithiasis [None]
  - Pain in jaw [None]
  - Procedural pain [None]
